FAERS Safety Report 11988248 (Version 5)
Quarter: 2018Q4

REPORT INFORMATION
  Report Type: Spontaneous
  Country: US (occurrence: US)
  Receive Date: 20160202
  Receipt Date: 20181129
  Transmission Date: 20190204
  Serious: Yes (Hospitalization)
  Sender: FDA-Public Use
  Company Number: US-PFIZER INC-2016051607

PATIENT
  Age: 71 Year
  Sex: Female
  Weight: 67 kg

DRUGS (40)
  1. VITAMIN E [Concomitant]
     Active Substance: .ALPHA.-TOCOPHEROL
     Dosage: 1000 MG, 1X/DAY
  2. MONTELUKAST [Concomitant]
     Active Substance: MONTELUKAST SODIUM
     Indication: HYPERSENSITIVITY
     Dosage: 10 MG, 1X/DAY
  3. TRAMADOL. [Concomitant]
     Active Substance: TRAMADOL
     Indication: FIBROMYALGIA
     Dosage: 50 MG, AS NEEDED ( TID )
     Route: 048
  4. FLUTICASONE PROPIONATE. [Concomitant]
     Active Substance: FLUTICASONE PROPIONATE
     Dosage: 100 UG, 1X/DAY (50 MCG, 1 SPRAY IN EACH NOSTRIL NASALLY)
     Route: 045
  5. TRIAMTERENE AND HYDROCHLOROTHIAZIDE [Concomitant]
     Active Substance: HYDROCHLOROTHIAZIDE\TRIAMTERENE
     Dosage: 1 DF, 1X/DAY[TRIAMTERENE 37.5 MG] / [HCTZ 25 MG]
     Route: 048
     Dates: start: 20130403
  6. PROPRANOLOL HCL [Concomitant]
     Active Substance: PROPRANOLOL HYDROCHLORIDE
     Dosage: 10 MG, 2X/DAY
     Route: 048
  7. CLARITIN [Concomitant]
     Active Substance: LORATADINE
     Dosage: 10 MG, AS NEEDED (DAILY)
     Route: 048
  8. PRIMIDONE. [Concomitant]
     Active Substance: PRIMIDONE
     Dosage: 50 MG, 2X/DAY
     Route: 048
  9. LYRICA [Suspect]
     Active Substance: PREGABALIN
     Indication: FIBROMYALGIA
     Dosage: 50 MG, 3X/DAY
     Route: 048
  10. TRIAMTERENE. [Concomitant]
     Active Substance: TRIAMTERENE
     Dosage: 37.5 MG, 1X/DAY IN THE MORNING
  11. ASPIRIN. [Concomitant]
     Active Substance: ASPIRIN
     Dosage: 325 MG, DAILY
     Route: 048
  12. MEGARED PLANT OMEGA [Concomitant]
     Dosage: 500 MG, 1X/DAY
  13. KONSYL ORIGINAL FORMULA PSYLLIUM FIBER [Concomitant]
     Active Substance: PSYLLIUM HUSK
     Indication: CONSTIPATION
     Dosage: ONE TEASPOON TWICE A DAY
  14. ATIVAN [Concomitant]
     Active Substance: LORAZEPAM
     Indication: ANXIETY
     Dosage: 0.5 MG, AS NEEDED
  15. RESTORA [Concomitant]
     Dosage: 125 MG, 1X/DAY
     Route: 048
  16. NEURONTIN [Concomitant]
     Active Substance: GABAPENTIN
     Dosage: 100 MG, 3X/DAY
     Route: 048
     Dates: start: 20160718
  17. MISOPROSTOL. [Concomitant]
     Active Substance: MISOPROSTOL
     Dosage: 200 UG, 2X/DAY (1 TABLET WITH MEALS AND AT BEDTIME)
     Route: 048
  18. FUROSEMIDE. [Concomitant]
     Active Substance: FUROSEMIDE
     Dosage: 20 MG, AS NEEDED (DAILY )
     Route: 048
     Dates: start: 20130403
  19. BACLOFEN. [Concomitant]
     Active Substance: BACLOFEN
     Dosage: 10 MG, AS NEEDED (1 TABLET AS NEEDED WITH FOOD OR MILK ORALLY THREE TIMES A DAY )
     Dates: start: 20150202
  20. SINGULAIR [Concomitant]
     Active Substance: MONTELUKAST SODIUM
     Dosage: 10 MG, 1X/DAY
     Route: 048
  21. MEGA RED [Concomitant]
     Dosage: 1 DF, DAILY
     Route: 048
  22. LORAZEPAM. [Concomitant]
     Active Substance: LORAZEPAM
     Indication: INSOMNIA
  23. OMEPRAZOLE. [Concomitant]
     Active Substance: OMEPRAZOLE
     Indication: GASTROOESOPHAGEAL REFLUX DISEASE
     Dosage: 20 MG, 1X/DAY
  24. ASPIRIN. [Concomitant]
     Active Substance: ASPIRIN
     Dosage: 80 MG, 1X/DAY
  25. VITAMIN E [Concomitant]
     Active Substance: .ALPHA.-TOCOPHEROL
     Dosage: 1000 IU, DAILY
     Route: 048
  26. FUROSEMIDE. [Concomitant]
     Active Substance: FUROSEMIDE
     Indication: SWELLING
     Dosage: 20 MG, AS NEEDED
  27. LORAZEPAM. [Concomitant]
     Active Substance: LORAZEPAM
     Indication: ANXIETY
     Dosage: 0.5 MG, AS NEEDED (1 TABLET ORALLY TWICE DAILY)
     Route: 048
  28. LYRICA [Suspect]
     Active Substance: PREGABALIN
     Dosage: 75 MG, 3X/DAY
  29. OMEPRAZOLE. [Concomitant]
     Active Substance: OMEPRAZOLE
     Dosage: 20 MG, 2X/DAY
     Route: 048
  30. CALCIUM [Concomitant]
     Active Substance: CALCIUM
     Dosage: 1200 MG, DAILY
  31. LINZESS [Concomitant]
     Active Substance: LINACLOTIDE
     Dosage: 290 UG, 1X/DAY
     Route: 048
     Dates: start: 20160829
  32. ESTRACE [Concomitant]
     Active Substance: ESTRADIOL
     Dosage: 0.1 MG/GM
     Route: 067
  33. COENZYME Q10 [Concomitant]
     Active Substance: UBIDECARENONE
     Dosage: 50 MG, 1X/DAY
     Route: 048
  34. LYRICA [Suspect]
     Active Substance: PREGABALIN
     Dosage: 50 MG, FOUR TO FIVE TIMES A DAY
     Dates: start: 201512
  35. ATORVASTATIN [Concomitant]
     Active Substance: ATORVASTATIN
     Dosage: 20 MG, 1X/DAY
  36. MINERAL OIL. [Concomitant]
     Active Substance: MINERAL OIL
     Dosage: 1 TO 2 TABLESPOONS AS NEEDED
  37. BACLOFEN. [Concomitant]
     Active Substance: BACLOFEN
     Indication: PAIN
     Dosage: 10 MG, AS NEEDED 2X/DAY
  38. CALCIUM +D3 [Concomitant]
     Active Substance: CALCIUM\CHOLECALCIFEROL
     Dosage: UNK (CALCIUM 1200+D3 600-40-500 MG-MG-UNIT)
     Route: 048
  39. TRAMADOL HCL [Concomitant]
     Active Substance: TRAMADOL HYDROCHLORIDE
     Dosage: 50 MG, AS NEEDED (TID)
     Route: 048
  40. ADVAIR DISKUS [Concomitant]
     Active Substance: FLUTICASONE PROPIONATE\SALMETEROL XINAFOATE
     Dosage: 1 DF, 2X/DAY [FLUTICASONE PROPIONATE 250 MCG, SALMETEROL XINAFOATE 50 MCG]
     Route: 055
     Dates: start: 20130403

REACTIONS (8)
  - Somnolence [Recovered/Resolved]
  - Pain [Unknown]
  - Intentional product misuse [Recovered/Resolved]
  - Dizziness [Recovered/Resolved]
  - Drug ineffective [Unknown]
  - Fibromyalgia [Recovered/Resolved]
  - Swelling [Recovered/Resolved]
  - Drug intolerance [Recovered/Resolved]

NARRATIVE: CASE EVENT DATE: 201512
